FAERS Safety Report 8181349-6 (Version None)
Quarter: 2012Q1

REPORT INFORMATION
  Report Type: 
  Country: None (occurrence: None)
  Receive Date: 20120302
  Receipt Date: 20120227
  Transmission Date: 20120608
  Serious: Yes (Other)
  Sender: FDA-Public Use
  Company Number: US-PFIZER INC-2012051283

PATIENT
  Age: 17 Month
  Sex: Male

DRUGS (1)
  1. VORICONAZOLE [Suspect]
     Indication: FUNGAEMIA
     Dosage: 7.2 (MG/KG) Q 12 HOURS
     Route: 042

REACTIONS (1)
  - HEPATIC ENZYME INCREASED [None]
